FAERS Safety Report 10062863 (Version 1)
Quarter: 2014Q2

REPORT INFORMATION
  Report Type: Spontaneous
  Country: US (occurrence: US)
  Receive Date: 20140407
  Receipt Date: 20140407
  Transmission Date: 20141212
  Serious: Yes (Hospitalization, Other)
  Sender: FDA-Public Use
  Company Number: US-ACTAVIS-2014-06330

PATIENT
  Age: 12 Year
  Sex: Male

DRUGS (3)
  1. GUANFACINE (AELLC) [Suspect]
     Indication: ATTENTION DEFICIT/HYPERACTIVITY DISORDER
     Dosage: 4 MG (REGULAR DOSE), FOLLOWED BY 8 MG 1.5 HOURS LATER
     Route: 048
  2. GUANFACINE (AELLC) [Suspect]
     Dosage: 4 MG, QHS
     Route: 048
  3. DEXMETHYLPHENIDATE [Concomitant]
     Indication: ATTENTION DEFICIT/HYPERACTIVITY DISORDER
     Dosage: 25 MG, DAILY
     Route: 065

REACTIONS (6)
  - Hypertension [Recovered/Resolved]
  - Lethargy [Recovered/Resolved]
  - Dysstasia [Recovered/Resolved]
  - Bradycardia [Recovered/Resolved]
  - Hypotension [Recovered/Resolved]
  - Intentional overdose [Recovered/Resolved]
